FAERS Safety Report 7265595-1 (Version None)
Quarter: 2011Q1

REPORT INFORMATION
  Report Type: 
  Country: None (occurrence: None)
  Receive Date: 20110131
  Receipt Date: 20101001
  Transmission Date: 20110831
  Serious: Yes (Other)
  Sender: FDA-Public Use
  Company Number: US-BAYER-201034856NA

PATIENT
  Sex: Female
  Weight: 56.689 kg

DRUGS (24)
  1. YASMIN [Suspect]
     Indication: PRODUCT USED FOR UNKNOWN INDICATION
     Dosage: UNK
     Dates: start: 20060101, end: 20090101
  2. METHADONE HCL [Concomitant]
     Indication: MULTIPLE SCLEROSIS
  3. MOTRIN [Concomitant]
  4. PHENERGAN [Concomitant]
     Indication: VOMITING
  5. LORA TAB [Concomitant]
     Indication: HEADACHE
     Dosage: 10 MG, UNK
     Dates: start: 20070501
  6. XANAX [Concomitant]
     Indication: DEPRESSION
     Dosage: 1 MG, QID
     Dates: start: 20070501
  7. XANAX [Concomitant]
     Indication: ANXIETY
  8. DEPAKOTE ER [Concomitant]
     Indication: HEADACHE
     Dosage: 500 MG, HS
     Dates: start: 20060301
  9. NUVARING [Concomitant]
     Dosage: UNK
     Dates: start: 20070101
  10. TAPAZOLE [Concomitant]
     Indication: HYPERTHYROIDISM
     Dosage: UNK
     Dates: start: 20070406
  11. NADOLOL [Concomitant]
     Indication: HEADACHE
     Dosage: 10 MG, QD
     Dates: start: 20060301
  12. PHENERGAN [Concomitant]
     Indication: NAUSEA
     Dosage: 25 MG, PRN
  13. LORA TAB [Concomitant]
     Indication: BACK PAIN
  14. ZOLOFT [Concomitant]
     Indication: DEPRESSION
     Dosage: 150 MG, QD
     Dates: start: 20070501
  15. DEPO-PROVERA [Concomitant]
  16. SEROQUEL [Concomitant]
     Indication: DEPRESSION
     Dosage: 25 MG, TID
     Dates: start: 20070501
  17. ZOLOFT [Concomitant]
     Indication: ANXIETY
  18. ROBAXIN [Concomitant]
     Dosage: 750 MG, TID
  19. UNCODEABLE ^UNCLASSIFIABLE^ [Concomitant]
     Dosage: UNK
     Dates: start: 20080401
  20. YAZ [Suspect]
     Indication: PRODUCT USED FOR UNKNOWN INDICATION
     Dosage: UNK
     Dates: start: 20060101, end: 20090101
  21. TOPAMAX [Concomitant]
     Indication: HEADACHE
     Dosage: 25 MG, UNK
     Route: 048
     Dates: start: 20061101
  22. SEROQUEL [Concomitant]
     Indication: ANXIETY
  23. ACETAMINOPHEN [Concomitant]
     Indication: HEADACHE
     Dosage: UNK UNK, PRN
     Dates: start: 20060301
  24. ADVIL LIQUI-GELS [Concomitant]
     Indication: HEADACHE
     Dosage: UNK UNK, PRN
     Dates: start: 20060301

REACTIONS (3)
  - GALLBLADDER DISORDER [None]
  - NEPHROLITHIASIS [None]
  - CHOLECYSTITIS ACUTE [None]
